FAERS Safety Report 16403212 (Version 1)
Quarter: 2019Q2

REPORT INFORMATION
  Report Type: Spontaneous
  Country: US (occurrence: US)
  Receive Date: 20190607
  Receipt Date: 20190607
  Transmission Date: 20190711
  Serious: Yes (Other)
  Sender: FDA-Public Use
  Company Number: US-FRESENIUS KABI-FK201906219

PATIENT
  Age: 22 Year
  Sex: Female

DRUGS (4)
  1. OXYTOCIN INJECTION, USP [Suspect]
     Active Substance: OXYTOCIN
     Indication: LABOUR STIMULATION
     Route: 065
  2. OXYTOCIN INJECTION, USP [Suspect]
     Active Substance: OXYTOCIN
     Route: 065
  3. OXYTOCIN INJECTION, USP [Suspect]
     Active Substance: OXYTOCIN
     Route: 065
  4. MAGNESIUM SULFATE. [Concomitant]
     Active Substance: MAGNESIUM SULFATE
     Indication: PRODUCT USED FOR UNKNOWN INDICATION

REACTIONS (2)
  - Seizure [Recovered/Resolved]
  - Exposure during pregnancy [Recovered/Resolved]
